FAERS Safety Report 18651511 (Version 1)
Quarter: 2020Q4

REPORT INFORMATION
  Report Type: Spontaneous
  Country: FI (occurrence: FI)
  Receive Date: 20201223
  Receipt Date: 20201223
  Transmission Date: 20210114
  Serious: Yes (Other)
  Sender: FDA-Public Use
  Company Number: FI-INSMED, INC.-E2B_00000418

PATIENT
  Sex: Female

DRUGS (4)
  1. AZTREONAM. [Suspect]
     Active Substance: AZTREONAM
     Indication: PRODUCT USED FOR UNKNOWN INDICATION
     Dates: start: 2020
  2. AMIKACIN. [Suspect]
     Active Substance: AMIKACIN
     Indication: PRODUCT USED FOR UNKNOWN INDICATION
     Dates: start: 2019
  3. TOBI PODHALER [Suspect]
     Active Substance: TOBRAMYCIN
     Indication: PSEUDOMONAS INFECTION
     Dates: start: 2019
  4. TOBI PODHALER [Suspect]
     Active Substance: TOBRAMYCIN
     Dates: start: 2020, end: 20200708

REACTIONS (8)
  - Lung disorder [Unknown]
  - Sputum abnormal [Unknown]
  - Sputum discoloured [Unknown]
  - Drug resistance [Unknown]
  - Product use issue [Unknown]
  - Sputum increased [Unknown]
  - Disease recurrence [Unknown]
  - Cough [Unknown]

NARRATIVE: CASE EVENT DATE: 2020
